FAERS Safety Report 9204664 (Version 2)
Quarter: 2013Q3

REPORT INFORMATION
  Report Type: Spontaneous
  Country: US (occurrence: None)
  Receive Date: 20130329
  Receipt Date: 20130911
  Transmission Date: 20140515
  Serious: Yes (Other)
  Sender: FDA-Public Use
  Company Number: CIO13015647

PATIENT
  Age: 60 Year
  Sex: Female
  Weight: 51.2 kg

DRUGS (9)
  1. PRO-HEALTH COMPLETE ARTICAVITY FLUORIDE RINSE, [Suspect]
     Indication: PROPHYLAXIS
     Dosage: 2 TSP, EVENING,  INTRAORAL
     Route: 031
     Dates: start: 201205, end: 201205
  2. PRO-HEALTH COMPLETE ARTICAVITY FLUORIDE RINSE, [Suspect]
     Indication: TOOTH DISORDER
     Dosage: 2 TSP, EVENING,  INTRAORAL
     Route: 031
     Dates: start: 201205, end: 201205
  3. FISH OIL (FISH OIL) [Concomitant]
  4. CALCIUM (CALCIUM) [Concomitant]
  5. MAGNESIUM (MAGNESIUM) [Concomitant]
  6. ZINC (ZINC) [Concomitant]
  7. VITAMIN D3 (COLECALCIFEROL) [Concomitant]
  8. PROBIOTICS [Concomitant]
  9. EVISTA (RALOXIFENE) [Concomitant]

REACTIONS (42)
  - Dyspnoea [None]
  - Erythema [None]
  - Erythema [None]
  - Pruritus [None]
  - Rash [None]
  - Ear swelling [None]
  - Paraesthesia oral [None]
  - Paraesthesia oral [None]
  - Chapped lips [None]
  - Lip dry [None]
  - Insomnia [None]
  - Heart rate increased [None]
  - Depressed mood [None]
  - Agitation [None]
  - Tremor [None]
  - Dysaesthesia [None]
  - Dizziness [None]
  - Dry mouth [None]
  - Thirst [None]
  - Pruritus generalised [None]
  - Nasal oedema [None]
  - Insomnia [None]
  - Nervousness [None]
  - Pruritus generalised [None]
  - Skin tightness [None]
  - Dry skin [None]
  - Xerosis [None]
  - Skin exfoliation [None]
  - Actinic keratosis [None]
  - Flushing [None]
  - Psychomotor hyperactivity [None]
  - Disturbance in attention [None]
  - Hyperaesthesia [None]
  - Hypersensitivity [None]
  - Expired drug administered [None]
  - Dermatitis contact [None]
  - Sensation of foreign body [None]
  - Rhinitis [None]
  - Dysphonia [None]
  - Glossodynia [None]
  - Presyncope [None]
  - Pain [None]
